FAERS Safety Report 7714870-2 (Version None)
Quarter: 2011Q3

REPORT INFORMATION
  Report Type: 
  Country: None (occurrence: None)
  Receive Date: 20110822
  Receipt Date: 20110804
  Transmission Date: 20111222
  Serious: Yes (Death, Other)
  Sender: FDA-Public Use
  Company Number: 2011MA011468

PATIENT
  Age: 41 Year

DRUGS (7)
  1. CITALOPRAM HYDROBROMIDE [Suspect]
     Indication: OVERDOSE
     Dosage: X1
  2. DIAZEPAM [Suspect]
     Indication: OVERDOSE
     Dosage: X1
  3. OLANZAPINE [Suspect]
     Indication: OVERDOSE
     Dosage: X1
  4. NORDIAZEPAM (NO PREF. NAME) [Suspect]
     Indication: OVERDOSE
     Dosage: X1
  5. METHADONE HCL [Suspect]
     Indication: OVERDOSE
     Dosage: 0.8 MG/L;X1
  6. METHAMPHETAMINE HYDROCHLORIDE [Suspect]
     Indication: OVERDOSE
     Dosage: X1
  7. THC (NO PREF. NAME) [Suspect]
     Indication: OVERDOSE
     Dosage: X1

REACTIONS (7)
  - MULTIPLE DRUG OVERDOSE [None]
  - PULMONARY OEDEMA [None]
  - TOXICITY TO VARIOUS AGENTS [None]
  - ASPIRATION [None]
  - STUPOR [None]
  - PNEUMONIA [None]
  - PULMONARY CONGESTION [None]
